FAERS Safety Report 5884731-2 (Version None)
Quarter: 2008Q3

REPORT INFORMATION
  Report Type: 
  Country: None (occurrence: None)
  Receive Date: 20080916
  Receipt Date: 20080909
  Transmission Date: 20090109
  Serious: Yes (Death, Other)
  Sender: FDA-Public Use
  Company Number: US-AVENTIS-200815900US

PATIENT

DRUGS (2)
  1. LOVENOX [Suspect]
     Route: 058
  2. LOVENOX [Suspect]
     Route: 058

REACTIONS (2)
  - DEATH [None]
  - HAEMATOCRIT DECREASED [None]
